FAERS Safety Report 20783066 (Version 1)
Quarter: 2022Q2

REPORT INFORMATION
  Report Type: Report from Study
  Country: AR (occurrence: AR)
  Receive Date: 20220504
  Receipt Date: 20220504
  Transmission Date: 20220721
  Serious: Yes (Other)
  Sender: FDA-Public Use
  Company Number: AR-NOVARTISPH-NVSC2022AR101603

PATIENT
  Age: 34 Year
  Sex: Male

DRUGS (1)
  1. NEORAL [Suspect]
     Active Substance: CYCLOSPORINE
     Indication: Secondary immunodeficiency
     Dosage: 0.8 MG, QD
     Route: 058
     Dates: start: 20070608

REACTIONS (4)
  - Eye haemorrhage [Unknown]
  - Blindness [Unknown]
  - Incorrect route of product administration [Unknown]
  - Inappropriate schedule of product administration [Unknown]

NARRATIVE: CASE EVENT DATE: 20070608
